FAERS Safety Report 4982269-8 (Version None)
Quarter: 2006Q2

REPORT INFORMATION
  Report Type: 
  Country: None (occurrence: None)
  Receive Date: 20060424
  Receipt Date: 20060424
  Transmission Date: 20061013
  Serious: Yes (Life-Threatening, Hospitalization, Other)
  Sender: FDA-Public Use
  Company Number: None

PATIENT
  Age: 22 Month
  Sex: Female
  Weight: 11 kg

DRUGS (1)
  1. SUBOXONE [Suspect]
     Indication: ACCIDENTAL EXPOSURE
     Dosage: 1 ONCE BUCCAL
     Route: 002
     Dates: start: 20040706, end: 20040706

REACTIONS (8)
  - ACCIDENTAL EXPOSURE [None]
  - DEPRESSED LEVEL OF CONSCIOUSNESS [None]
  - EYE ROLLING [None]
  - HEART RATE INCREASED [None]
  - LETHARGY [None]
  - MIOSIS [None]
  - RESPIRATORY RATE INCREASED [None]
  - SOMNOLENCE [None]
